FAERS Safety Report 18071641 (Version 1)
Quarter: 2020Q3

REPORT INFORMATION
  Report Type: Spontaneous
  Country: US (occurrence: US)
  Receive Date: 20200723
  Receipt Date: 20200723
  Transmission Date: 20201103
  Serious: Yes (Hospitalization)
  Sender: FDA-Public Use
  Company Number: None

PATIENT
  Age: 44 Year
  Sex: Male
  Weight: 123.7 kg

DRUGS (11)
  1. AUTOLOGOUS CD19 CHIMERIC ANTIGEN RECEPTOR (CAR) T CELLS [Suspect]
     Active Substance: GENETICALLY-MODIFIED AUTOLOGOUS T CELLS NOS
     Indication: B-CELL LYMPHOMA
     Dosage: ?          OTHER DOSE:102.4 X 10^6 CART ;?
     Route: 042
     Dates: start: 20200622, end: 20200622
  2. ACYCLOVIR. [Concomitant]
     Active Substance: ACYCLOVIR
  3. PROCHLORPERAZINE. [Concomitant]
     Active Substance: PROCHLORPERAZINE
  4. LORATADINE. [Concomitant]
     Active Substance: LORATADINE
  5. LEVETIRACETAM. [Concomitant]
     Active Substance: LEVETIRACETAM
  6. FLUDARABINE AND CYCLOPHOSPHAMIDE [Concomitant]
  7. ATOVAQUONE. [Concomitant]
     Active Substance: ATOVAQUONE
  8. AUTOLOGOUS CD19 CHIMERIC ANTIGEN RECEPTOR (CAR) T CELLS [Suspect]
     Active Substance: GENETICALLY-MODIFIED AUTOLOGOUS T CELLS NOS
     Indication: DIFFUSE LARGE B-CELL LYMPHOMA
     Dosage: ?          OTHER DOSE:102.4 X 10^6 CART ;?
     Route: 042
     Dates: start: 20200622, end: 20200622
  9. ALLOPURINOL. [Concomitant]
     Active Substance: ALLOPURINOL
  10. FLUCONAZOLE. [Concomitant]
     Active Substance: FLUCONAZOLE
  11. LEVOFLOXACIN. [Concomitant]
     Active Substance: LEVOFLOXACIN

REACTIONS (4)
  - Hyperhidrosis [None]
  - Asthenia [None]
  - Fatigue [None]
  - Somnolence [None]

NARRATIVE: CASE EVENT DATE: 20200718
